FAERS Safety Report 16957726 (Version 3)
Quarter: 2023Q2

REPORT INFORMATION
  Report Type: Spontaneous
  Country: AU (occurrence: AU)
  Receive Date: 20191024
  Receipt Date: 20230612
  Transmission Date: 20230722
  Serious: Yes (Hospitalization)
  Sender: FDA-Public Use
  Company Number: AU-VERTEX PHARMACEUTICALS-2019-009409

PATIENT
  Age: 7 Year
  Sex: Male

DRUGS (4)
  1. ORKAMBI [Suspect]
     Active Substance: IVACAFTOR\LUMACAFTOR
     Indication: Cystic fibrosis
     Dosage: 2 DOSAGE FORM, BID
     Route: 048
     Dates: start: 20190827, end: 201909
  2. CREON [Concomitant]
     Active Substance: PANCRELIPASE AMYLASE\PANCRELIPASE LIPASE\PANCRELIPASE PROTEASE
  3. SODIUM CHLORIDE [Concomitant]
     Active Substance: SODIUM CHLORIDE
     Route: 055
  4. PULMOZYME [Concomitant]
     Active Substance: DORNASE ALFA

REACTIONS (10)
  - Sneezing [Recovered/Resolved]
  - Productive cough [Recovered/Resolved]
  - Nasal congestion [Recovered/Resolved]
  - Gamma-glutamyltransferase increased [Recovered/Resolved]
  - Alanine aminotransferase increased [Recovering/Resolving]
  - Aspartate aminotransferase increased [Recovering/Resolving]
  - Abdominal pain [Recovered/Resolved]
  - Aggression [Recovered/Resolved]
  - Anger [Recovered/Resolved]
  - Defiant behaviour [Recovered/Resolved]

NARRATIVE: CASE EVENT DATE: 20190903
